FAERS Safety Report 25239467 (Version 1)
Quarter: 2025Q2

REPORT INFORMATION
  Report Type: Spontaneous
  Country: US (occurrence: None)
  Receive Date: 20250424
  Receipt Date: 20250424
  Transmission Date: 20250716
  Serious: No
  Sender: FDA-CTU
  Company Number: None

PATIENT
  Age: 74 Year
  Sex: Male
  Weight: 93 kg

DRUGS (4)
  1. TIRZEPATIDE [Suspect]
     Active Substance: TIRZEPATIDE
     Indication: Diabetes mellitus
     Route: 058
  2. METFORMIN [Suspect]
     Active Substance: METFORMIN HYDROCHLORIDE
  3. SEMAGLUTIDE [Suspect]
     Active Substance: SEMAGLUTIDE
  4. EMPAGLIFLOZIN [Suspect]
     Active Substance: EMPAGLIFLOZIN

REACTIONS (6)
  - Constipation [None]
  - Diarrhoea [None]
  - Nausea [None]
  - Vomiting [None]
  - Abdominal discomfort [None]
  - Therapy cessation [None]

NARRATIVE: CASE EVENT DATE: 20250219
